FAERS Safety Report 6465024-1 (Version None)
Quarter: 2009Q4

REPORT INFORMATION
  Report Type: 
  Country: None (occurrence: None)
  Receive Date: 20091201
  Receipt Date: 20090916
  Transmission Date: 20100525
  Serious: Yes (Hospitalization)
  Sender: FDA-Public Use
  Company Number: JP-SANOFI-AVENTIS-F01200900883

PATIENT
  Age: 66 Year
  Sex: Female
  Weight: 55 kg

DRUGS (11)
  1. CLOPIDOGREL BISULFATE [Suspect]
     Indication: ACUTE CORONARY SYNDROME
     Dosage: DOSE TEXT: STARTING DOSE
     Route: 048
     Dates: start: 20080805, end: 20080805
  2. CLOPIDOGREL BISULFATE [Suspect]
     Dosage: DOSE TEXT: STARTING DOSE
     Route: 048
     Dates: start: 20080805, end: 20080805
  3. CLOPIDOGREL BISULFATE [Suspect]
     Dosage: DOSE TEXT: MAINTENANCE DOSE
     Route: 048
     Dates: start: 20080806
  4. CLOPIDOGREL BISULFATE [Suspect]
     Dosage: DOSE TEXT: MAINTENANCE DOSE
     Route: 048
     Dates: start: 20080806
  5. ASPIRIN [Concomitant]
     Route: 048
     Dates: start: 20080805
  6. ARTIST [Concomitant]
     Route: 048
     Dates: start: 20080805
  7. TAKEPRON [Concomitant]
     Route: 048
     Dates: start: 20080805
  8. RENIVACE [Concomitant]
     Indication: CARDIAC FAILURE CHRONIC
     Route: 048
     Dates: start: 20080805
  9. CRESTOR [Concomitant]
     Route: 048
     Dates: start: 20080805
  10. HERBESSER ^DELTA^ [Concomitant]
     Route: 048
     Dates: start: 20080812
  11. SIGMART [Concomitant]
     Route: 048
     Dates: start: 20080812

REACTIONS (1)
  - IN-STENT CORONARY ARTERY RESTENOSIS [None]
